FAERS Safety Report 8171556-0 (Version None)
Quarter: 2012Q1

REPORT INFORMATION
  Report Type: 
  Country: None (occurrence: None)
  Receive Date: 20120228
  Receipt Date: 20120224
  Transmission Date: 20120608
  Serious: No
  Sender: FDA-Public Use
  Company Number: US-PFIZER INC-2012049981

PATIENT
  Sex: Female
  Weight: 81.6 kg

DRUGS (3)
  1. LYRICA [Suspect]
     Indication: TRIGEMINAL NEURALGIA
     Dosage: 900 MG DAILY
  2. ACETAMINOPHEN [Concomitant]
     Indication: MIGRAINE
     Dosage: 300-600 MG 2X/DAY
  3. LYRICA [Suspect]
     Indication: NERVE INJURY
     Dosage: UNK

REACTIONS (3)
  - APHONIA [None]
  - INFLUENZA [None]
  - OROPHARYNGEAL PAIN [None]
